FAERS Safety Report 9203391 (Version 1)
Quarter: 2013Q2

REPORT INFORMATION
  Report Type: Spontaneous
  Country: US (occurrence: US)
  Receive Date: 20130402
  Receipt Date: 20130402
  Transmission Date: 20140414
  Serious: Yes (Other)
  Sender: FDA-Public Use
  Company Number: US-SANOFI-AVENTIS-2013SA033973

PATIENT
  Sex: 0

DRUGS (3)
  1. LANTUS [Suspect]
     Indication: DIABETES MELLITUS
  2. NOVOLIN [Concomitant]
  3. NPH INSULIN [Concomitant]

REACTIONS (7)
  - Insomnia [Unknown]
  - Spinal disorder [Unknown]
  - Abdominal pain [Unknown]
  - Urine abnormality [Unknown]
  - Headache [Unknown]
  - Feeling abnormal [Unknown]
  - Blood glucose increased [Recovered/Resolved]
